FAERS Safety Report 9284988 (Version 1)
Quarter: 2013Q2

REPORT INFORMATION
  Report Type: Report from Study
  Country: JP (occurrence: JP)
  Receive Date: 20130513
  Receipt Date: 20130513
  Transmission Date: 20140414
  Serious: Yes (Hospitalization)
  Sender: FDA-Public Use
  Company Number: PHHY2013JP046617

PATIENT
  Age: 37 Year
  Sex: Female

DRUGS (4)
  1. LEPONEX / CLOZARIL [Suspect]
     Indication: SCHIZOPHRENIA
     Dosage: 12.5 MG, QD
     Route: 048
     Dates: start: 20130403
  2. LEPONEX / CLOZARIL [Suspect]
     Dosage: 200 MG, QD
     Route: 048
  3. LEPONEX / CLOZARIL [Suspect]
     Dosage: 100 MG, QD
     Route: 048
     Dates: end: 20130428
  4. LIMAS [Suspect]
     Dosage: UNK
     Route: 048

REACTIONS (2)
  - Hypernatraemia [Unknown]
  - Depressed level of consciousness [Unknown]
